FAERS Safety Report 26074252 (Version 1)
Quarter: 2025Q4

REPORT INFORMATION
  Report Type: Spontaneous
  Country: US (occurrence: US)
  Receive Date: 20251121
  Receipt Date: 20251121
  Transmission Date: 20260118
  Serious: Yes (Other)
  Sender: DR REDDYS
  Company Number: None

PATIENT
  Age: 63 Year
  Sex: Male

DRUGS (9)
  1. TACROLIMUS [Suspect]
     Active Substance: TACROLIMUS
     Indication: Immunosuppressant drug therapy
     Dosage: TARGET, 8-12 MG/DL, LOWERED TACROLIMUS TARGET OF 6-10 MG/DL ON DAY 36, TARGET WAS INCREASED BACK TO
  2. METHYLPREDNISOLONE [Concomitant]
     Active Substance: METHYLPREDNISOLONE
     Indication: Graft versus host disease
  3. METHYLPREDNISOLONE [Concomitant]
     Active Substance: METHYLPREDNISOLONE
     Dosage: DOSE WAS INCREASED
  4. METHYLPREDNISOLONE [Concomitant]
     Active Substance: METHYLPREDNISOLONE
     Dosage: ON DAY 36 DOSE WAS DECREASED, CORTICOSTEROID TAPER ON DAY 59
  5. BUDESONIDE [Concomitant]
     Active Substance: BUDESONIDE
     Indication: Graft versus host disease
     Route: 048
  6. HYDROCORTISONE [Concomitant]
     Active Substance: HYDROCORTISONE
     Indication: Graft versus host disease in skin
     Dosage: 1% HYDROCORTISONE CREAM TID
     Route: 061
  7. URSODIOL [Concomitant]
     Active Substance: URSODIOL
     Indication: Product used for unknown indication
  8. RUXOLITINIB [Concomitant]
     Active Substance: RUXOLITINIB
     Indication: Graft versus host disease
     Dosage: ON DAY 59
  9. RUXOLITINIB [Concomitant]
     Active Substance: RUXOLITINIB
     Indication: Epstein-Barr viraemia
     Dosage: ON DAYS 42 AND 52

REACTIONS (1)
  - Seizure [Unknown]
